FAERS Safety Report 8315591-8 (Version None)
Quarter: 2012Q2

REPORT INFORMATION
  Report Type: 
  Country: None (occurrence: None)
  Receive Date: 20120426
  Receipt Date: 20120424
  Transmission Date: 20120825
  Serious: Yes (Hospitalization, Other)
  Sender: FDA-Public Use
  Company Number: FR-ROCHE-1052366

PATIENT
  Age: 80 Year
  Sex: Male

DRUGS (2)
  1. MABTHERA [Suspect]
     Indication: RHEUMATOID ARTHRITIS
     Route: 042
     Dates: start: 20070101, end: 20090601
  2. ACTEMRA [Suspect]
     Indication: RHEUMATOID ARTHRITIS
     Route: 042
     Dates: start: 20100311

REACTIONS (3)
  - CYTOMEGALOVIRUS INFECTION [None]
  - LYMPHOPENIA [None]
  - MENINGITIS LISTERIA [None]
